FAERS Safety Report 21903516 (Version 1)
Quarter: 2023Q1

REPORT INFORMATION
  Report Type: Spontaneous
  Country: IT (occurrence: IT)
  Receive Date: 20230124
  Receipt Date: 20230124
  Transmission Date: 20230418
  Serious: Yes (Hospitalization)
  Sender: FDA-Public Use
  Company Number: IT-MYLANLABS-2023M1007837

PATIENT
  Age: 75 Year
  Sex: Female

DRUGS (5)
  1. PACLITAXEL [Suspect]
     Active Substance: PACLITAXEL
     Indication: Ovarian cancer
     Dosage: 175 MILLIGRAM/SQ. METER, 3XW; THREE CYCLES
     Route: 065
     Dates: start: 20170614, end: 20170726
  2. PACLITAXEL [Suspect]
     Active Substance: PACLITAXEL
     Dosage: UNK UNK, CYCLE; THREE CYCLES
     Route: 065
     Dates: start: 20171018, end: 20171129
  3. CARBOPLATIN [Suspect]
     Active Substance: CARBOPLATIN
     Indication: Ovarian cancer
     Dosage: UNK UNK, CYCLE; AUC 5; THREE CYCLES
     Route: 065
     Dates: start: 20170614, end: 20170726
  4. CARBOPLATIN [Suspect]
     Active Substance: CARBOPLATIN
     Dosage: UNK UNK, CYCLE; THREE CYCLES
     Route: 065
     Dates: start: 20171018, end: 20171129
  5. AVELUMAB [Suspect]
     Active Substance: AVELUMAB
     Indication: Ovarian cancer
     Dosage: UNK UNK, CYCLE; 20 CYCLES
     Route: 065
     Dates: start: 20171229, end: 20181017

REACTIONS (2)
  - Drug ineffective [Unknown]
  - Disease progression [Unknown]
